FAERS Safety Report 4750528-X (Version None)
Quarter: 2005Q3

REPORT INFORMATION
  Report Type: 
  Country: None (occurrence: None)
  Receive Date: 20050823
  Receipt Date: 20050712
  Transmission Date: 20060218
  Serious: Yes (Hospitalization, Other)
  Sender: FDA-Public Use
  Company Number: US-MERCK-0507USA01656

PATIENT
  Age: 43 Year
  Sex: Male
  Weight: 127 kg

DRUGS (10)
  1. VIOXX [Suspect]
     Indication: ARTHRITIS
     Route: 048
     Dates: start: 20020314, end: 20040910
  2. VIOXX [Suspect]
     Route: 048
     Dates: start: 20020314, end: 20040910
  3. VIOXX [Suspect]
     Indication: ARTHRALGIA
     Route: 048
     Dates: start: 20020314, end: 20040910
  4. VIOXX [Suspect]
     Route: 048
     Dates: start: 20020314, end: 20040910
  5. ASPIRIN [Concomitant]
     Route: 065
  6. VASOTEC RPD [Concomitant]
     Route: 065
  7. ZOCOR [Concomitant]
     Route: 065
  8. HYDROCHLOROTHIAZIDE [Concomitant]
     Route: 065
  9. LISINOPRIL [Concomitant]
     Route: 065
  10. [THERAPY UNSPECIFIED] [Concomitant]
     Route: 065

REACTIONS (5)
  - ARTHROPATHY [None]
  - MYOCARDIAL INFARCTION [None]
  - THROMBOSIS [None]
  - TRANSIENT ISCHAEMIC ATTACK [None]
  - VENA CAVA INJURY [None]
